FAERS Safety Report 24953149 (Version 1)
Quarter: 2025Q1

REPORT INFORMATION
  Report Type: Spontaneous
  Country: FR (occurrence: FR)
  Receive Date: 20250211
  Receipt Date: 20250211
  Transmission Date: 20250408
  Serious: Yes (Congenital Anomaly, Other)
  Sender: ADVANZ PHARMA
  Company Number: None

PATIENT

DRUGS (5)
  1. HYDROXYCHLOROQUINE SULFATE [Suspect]
     Active Substance: HYDROXYCHLOROQUINE SULFATE
     Indication: Systemic lupus erythematosus
     Route: 064
  2. AMITRIPTYLINE HYDROCHLORIDE [Suspect]
     Active Substance: AMITRIPTYLINE HYDROCHLORIDE
     Indication: Migraine
     Route: 064
  3. ASPIRIN DL-LYSINE [Suspect]
     Active Substance: ASPIRIN DL-LYSINE
     Indication: Antiphospholipid syndrome
     Route: 064
     Dates: start: 20230627
  4. INNOHEP [Suspect]
     Active Substance: TINZAPARIN SODIUM
     Indication: Antiphospholipid syndrome
     Route: 064
  5. SUMATRIPTAN [Suspect]
     Active Substance: SUMATRIPTAN
     Indication: Migraine
     Route: 064
     Dates: start: 20230627

REACTIONS (2)
  - Cleft lip and palate [Recovering/Resolving]
  - Maternal exposure during pregnancy [Unknown]

NARRATIVE: CASE EVENT DATE: 20230523
